FAERS Safety Report 6927565-X (Version None)
Quarter: 2010Q3

REPORT INFORMATION
  Report Type: 
  Country: None (occurrence: None)
  Receive Date: 20100817
  Receipt Date: 20100727
  Transmission Date: 20110219
  Serious: Yes (Hospitalization, Other)
  Sender: FDA-Public Use
  Company Number: US-BAYER-200929039NA

PATIENT
  Age: 41 Year
  Sex: Female
  Weight: 75 kg

DRUGS (7)
  1. YAZ [Suspect]
     Indication: PRODUCT USED FOR UNKNOWN INDICATION
     Route: 048
     Dates: start: 20070301, end: 20071001
  2. PROPOXYPHENE HCL [Concomitant]
     Route: 065
     Dates: start: 20060207, end: 20070403
  3. PENICILLIN VK [Concomitant]
     Route: 065
     Dates: start: 20060711, end: 20061005
  4. AMOXICILLIN [Concomitant]
     Dosage: 12-FEB-2007
     Route: 065
  5. IBUPROFEN [Concomitant]
     Dosage: 03-APR-2007
     Route: 065
  6. NIFEDIPINE [Concomitant]
     Dosage: 03-APR-2007
     Route: 065
  7. HYDROCOD 5/500 APAP [Concomitant]
     Dosage: 5/500. 04-APR-2007
     Route: 065

REACTIONS (4)
  - ARTHRALGIA [None]
  - DEEP VEIN THROMBOSIS [None]
  - MUSCLE STRAIN [None]
  - PAIN [None]
